FAERS Safety Report 4385580-7 (Version None)
Quarter: 2004Q2

REPORT INFORMATION
  Report Type: 
  Country: None (occurrence: None)
  Receive Date: 20040622
  Receipt Date: 20040608
  Transmission Date: 20050107
  Serious: Yes (Death, Life-Threatening, Hospitalization)
  Sender: FDA-Public Use
  Company Number: 04P-066-0257375-00

PATIENT
  Age: 57 Year
  Sex: Female
  Weight: 64 kg

DRUGS (12)
  1. DEPAKENE [Suspect]
     Indication: CONVULSION PROPHYLAXIS
     Dosage: 500 MG, 2 IN 1 D, ORAL
     Route: 048
     Dates: start: 20040205, end: 20040316
  2. TEMODAR [Suspect]
     Indication: GLIOBLASTOMA MULTIFORME
     Dosage: 120 MG, 1 IN 1 D, ORAL
     Route: 048
     Dates: start: 20040218, end: 20040322
  3. AMPHOTERICIN B [Suspect]
     Indication: ANTIFUNGAL PROPHYLAXIS
     Dosage: 240 MG, INTRAVENOUS; SEE IMAGE
     Route: 042
     Dates: start: 20040401, end: 20040402
  4. AMPHOTERICIN B [Suspect]
     Indication: ANTIFUNGAL PROPHYLAXIS
     Dosage: 240 MG, INTRAVENOUS; SEE IMAGE
     Route: 042
     Dates: start: 20040403, end: 20040404
  5. AMPHOTERICIN B [Suspect]
     Indication: ANTIFUNGAL PROPHYLAXIS
     Dosage: 240 MG, INTRAVENOUS; SEE IMAGE
     Route: 042
     Dates: start: 20040405, end: 20040406
  6. AMPHOTERICIN B [Suspect]
     Indication: ANTIFUNGAL PROPHYLAXIS
     Dosage: 240 MG, INTRAVENOUS; SEE IMAGE
     Route: 042
     Dates: start: 20040407, end: 20040408
  7. AMPHOTERICIN B [Suspect]
     Indication: ANTIFUNGAL PROPHYLAXIS
     Dosage: 240 MG, INTRAVENOUS; SEE IMAGE
     Route: 042
     Dates: start: 20040409, end: 20040410
  8. METHYLPREDNISOLONE [Suspect]
     Indication: GLIOBLASTOMA MULTIFORME
     Dosage: 16 MG, 3 IN 1 D, PER ORAL; SEE IMAGE
     Route: 048
     Dates: start: 20040218, end: 20040326
  9. METHYLPREDNISOLONE [Suspect]
     Indication: GLIOBLASTOMA MULTIFORME
     Dosage: 16 MG, 3 IN 1 D, PER ORAL; SEE IMAGE
     Route: 048
     Dates: start: 20040327
  10. PHENYTOIN SODIUM [Suspect]
     Indication: CONVULSION PROPHYLAXIS
     Dosage: 100 MG, 3 IN 1 D, PER ORAL
     Route: 048
     Dates: start: 20040316, end: 20040401
  11. LENOGRASTIM [Concomitant]
  12. EPOGEN [Concomitant]

REACTIONS (5)
  - BONE MARROW TOXICITY [None]
  - DISEASE PROGRESSION [None]
  - FEBRILE NEUTROPENIA [None]
  - HYPOKALAEMIA [None]
  - PANCYTOPENIA [None]
